FAERS Safety Report 16055819 (Version 1)
Quarter: 2019Q2

REPORT INFORMATION
  Report Type: Spontaneous
  Country: US (occurrence: US)
  Receive Date: 20190308
  Receipt Date: 20190308
  Transmission Date: 20190711
  Serious: Yes (Life-Threatening, Hospitalization)
  Sender: FDA-Public Use
  Company Number: None

PATIENT
  Age: 64 Year
  Sex: Female
  Weight: 176.4 kg

DRUGS (1)
  1. APIXABAN [Suspect]
     Active Substance: APIXABAN
     Indication: ATRIAL FIBRILLATION
     Route: 048
     Dates: start: 20181220, end: 20190222

REACTIONS (4)
  - Bacteraemia [None]
  - Gastrointestinal haemorrhage [None]
  - Influenza [None]
  - Occult blood positive [None]

NARRATIVE: CASE EVENT DATE: 20190222
